FAERS Safety Report 10267287 (Version 1)
Quarter: 2014Q2

REPORT INFORMATION
  Report Type: Spontaneous
  Country: US (occurrence: US)
  Receive Date: 20140630
  Receipt Date: 20140630
  Transmission Date: 20141212
  Serious: Yes (Other)
  Sender: FDA-Public Use
  Company Number: US-SA-2014SA083413

PATIENT
  Sex: Female

DRUGS (1)
  1. FABRAZYME [Suspect]
     Indication: OCCUPATIONAL EXPOSURE TO PRODUCT
     Route: 065
     Dates: start: 20140618, end: 20140618

REACTIONS (4)
  - Syncope [Unknown]
  - Occupational exposure to product [Unknown]
  - Feeling hot [Unknown]
  - Pallor [Unknown]
